FAERS Safety Report 24383781 (Version 1)
Quarter: 2024Q4

REPORT INFORMATION
  Report Type: Spontaneous
  Country: US (occurrence: US)
  Receive Date: 20241001
  Receipt Date: 20241001
  Transmission Date: 20250114
  Serious: Yes (Hospitalization)
  Sender: DR REDDYS
  Company Number: US-DRL-USA-LIT/USA/24/0014089

PATIENT
  Age: 54 Year
  Sex: Female

DRUGS (18)
  1. MONTELUKAST [Suspect]
     Active Substance: MONTELUKAST
     Indication: Anaphylactic reaction
     Dosage: 10 MG ORALLY, RESPECTIVELY, 13 HOURS AND 1 HOUR BEFORE THE PROCEDURE
     Route: 048
  2. MONTELUKAST [Suspect]
     Active Substance: MONTELUKAST
     Indication: Cytokine release syndrome
  3. PREDNISONE [Concomitant]
     Active Substance: PREDNISONE
     Indication: Cytokine release syndrome
     Dosage: 50 MG ORALLY 13 HOURS, 7 HOURS, AND 1 HOUR BEFORE THE PROCEDURE
     Route: 048
  4. PREDNISONE [Concomitant]
     Active Substance: PREDNISONE
     Indication: Anaphylactic reaction
  5. ASPIRIN [Concomitant]
     Active Substance: ASPIRIN
     Indication: Cytokine release syndrome
     Dosage: 325 MG ORALLY, RESPECTIVELY, 13 HOURS AND 1 HOUR BEFORE THE PROCEDURE
     Route: 048
  6. ASPIRIN [Concomitant]
     Active Substance: ASPIRIN
     Indication: Anaphylactic reaction
  7. DIPHENHYDRAMINE [Concomitant]
     Active Substance: DIPHENHYDRAMINE
     Indication: Cytokine release syndrome
     Dosage: 25 MG INTRAVENOUSLY [IV], RESPECTIVELY, 20 MINUTES BEFORE THE PROCEDURE).
     Route: 042
  8. DIPHENHYDRAMINE [Concomitant]
     Active Substance: DIPHENHYDRAMINE
     Indication: Anaphylactic reaction
  9. FAMOTIDINE [Concomitant]
     Active Substance: FAMOTIDINE
     Indication: Cytokine release syndrome
     Dosage: 40 MG INTRAVENOUSLY [IV], RESPECTIVELY, 20 MINUTES BEFORE THE PROCEDURE
     Route: 042
  10. FAMOTIDINE [Concomitant]
     Active Substance: FAMOTIDINE
     Indication: Anaphylactic reaction
  11. DEXAMETHASONE [Concomitant]
     Active Substance: DEXAMETHASONE
     Indication: Cytokine release syndrome
     Dosage: 10 MG EVERY 6 HOURS
     Route: 048
  12. DEXAMETHASONE [Concomitant]
     Active Substance: DEXAMETHASONE
     Indication: Anaphylactic reaction
  13. LORATADINE [Concomitant]
     Active Substance: LORATADINE
     Indication: Cytokine release syndrome
     Dosage: 20MG TWICE DAILY
     Route: 048
  14. LORATADINE [Concomitant]
     Active Substance: LORATADINE
     Indication: Anaphylactic reaction
  15. EPINEPHRINE [Concomitant]
     Active Substance: EPINEPHRINE
     Indication: Cytokine release syndrome
     Route: 048
  16. EPINEPHRINE [Concomitant]
     Active Substance: EPINEPHRINE
     Indication: Anaphylactic reaction
  17. ONDANSETRON [Concomitant]
     Active Substance: ONDANSETRON
     Indication: Cytokine release syndrome
     Dosage: 4 MG IV
     Route: 042
  18. ONDANSETRON [Concomitant]
     Active Substance: ONDANSETRON
     Indication: Anaphylactic reaction

REACTIONS (1)
  - Drug ineffective for unapproved indication [Unknown]
